FAERS Safety Report 17670882 (Version 1)
Quarter: 2020Q2

REPORT INFORMATION
  Report Type: Spontaneous
  Country: US (occurrence: US)
  Receive Date: 20200415
  Receipt Date: 20200415
  Transmission Date: 20200713
  Serious: No
  Sender: FDA-Public Use
  Company Number: None

PATIENT
  Age: 72 Year
  Sex: Male
  Weight: 60.48 kg

DRUGS (12)
  1. DILTIAZEM ER, 240MG, ORAL [Concomitant]
  2. YERVOY, 200MG/40ML, IV [Concomitant]
  3. CABOMETYX, 60MG, ORAL [Concomitant]
  4. AMLODIPINE 10MG, ORAL [Concomitant]
  5. CABOZANTINIB, 60MG, ORAL [Concomitant]
  6. CALCIUM + D, 315 - 200MG, ORAL [Concomitant]
  7. KEYTRUDA, 100MG/4ML, IV [Concomitant]
  8. XGEVA, 120MG/1.7ML, SQ [Concomitant]
  9. ONDANSETRON 8MG, ORAL [Concomitant]
  10. VOTRIENT [Suspect]
     Active Substance: PAZOPANIB HYDROCHLORIDE
     Indication: RENAL CANCER
     Route: 048
     Dates: start: 20190802, end: 20200415
  11. VOTRIENT 200MG ,ORAL [Concomitant]
  12. LEVOTHYROXINE 75 MCG, ORAL [Concomitant]

REACTIONS (1)
  - Proteinuria [None]

NARRATIVE: CASE EVENT DATE: 20200415
